FAERS Safety Report 5877821-1 (Version None)
Quarter: 2008Q3

REPORT INFORMATION
  Report Type: 
  Country: None (occurrence: None)
  Receive Date: 20080908
  Receipt Date: 20080908
  Transmission Date: 20090109
  Serious: Yes (Other)
  Sender: FDA-Public Use
  Company Number: None

PATIENT
  Age: 90 Year
  Sex: Male
  Weight: 73 kg

DRUGS (1)
  1. LEVAQUIN [Suspect]
     Dosage: 750 MG ONCE IV
     Route: 042

REACTIONS (4)
  - BURNING SENSATION [None]
  - ERYTHEMA [None]
  - PRURITUS [None]
  - RASH MACULAR [None]
